FAERS Safety Report 15790257 (Version 1)
Quarter: 2019Q1

REPORT INFORMATION
  Report Type: Spontaneous
  Country: AU (occurrence: AU)
  Receive Date: 20190104
  Receipt Date: 20190104
  Transmission Date: 20190417
  Serious: Yes (Hospitalization)
  Sender: FDA-Public Use
  Company Number: PHHY2018AU198322

PATIENT
  Age: 42 Year
  Sex: Male

DRUGS (10)
  1. ETHAMBUTOL [Suspect]
     Active Substance: ETHAMBUTOL HYDROCHLORIDE
     Indication: MYCOBACTERIAL INFECTION
     Dosage: 1600 MG, QD
     Route: 065
  2. RIFABUTIN. [Suspect]
     Active Substance: RIFABUTIN
     Dosage: 450 G, QD
     Route: 065
  3. AMIKACIN. [Suspect]
     Active Substance: AMIKACIN
     Indication: MYCOBACTERIAL INFECTION
     Dosage: 1.5 G (15 MG/KG), UNK
     Route: 042
  4. AMIKACIN. [Suspect]
     Active Substance: AMIKACIN
     Dosage: 1750 MG, Q3W
     Route: 065
  5. ETHAMBUTOL [Suspect]
     Active Substance: ETHAMBUTOL HYDROCHLORIDE
     Dosage: 2400 MG, UNK
     Route: 065
  6. LINEZOLID. [Suspect]
     Active Substance: LINEZOLID
     Indication: MYCOBACTERIAL INFECTION
     Dosage: 600 MG, QD
     Route: 065
  7. RIFABUTIN. [Suspect]
     Active Substance: RIFABUTIN
     Indication: MYCOBACTERIAL INFECTION
     Dosage: 300 MG, QD
     Route: 048
  8. AZITHROMYCIN ANHYDROUS. [Concomitant]
     Active Substance: AZITHROMYCIN ANHYDROUS
     Dosage: 1 G, UNK
     Route: 065
  9. AZITHROMYCIN ANHYDROUS. [Concomitant]
     Active Substance: AZITHROMYCIN ANHYDROUS
     Indication: BACTERIAL INFECTION
     Dosage: 500 MG, QD
     Route: 065
  10. CLARITHROMYCIN. [Suspect]
     Active Substance: CLARITHROMYCIN
     Indication: MYCOBACTERIAL INFECTION
     Dosage: 500 MG, BID
     Route: 065

REACTIONS (10)
  - Kidney rupture [Recovered/Resolved]
  - Abscess [Recovered/Resolved]
  - Pyrexia [Recovered/Resolved]
  - Acute kidney injury [Recovered/Resolved]
  - Acid fast bacilli infection [Recovered/Resolved]
  - Immune reconstitution inflammatory syndrome [Recovered/Resolved]
  - Abdominal pain [Recovered/Resolved]
  - Mycobacterial infection [Recovered/Resolved]
  - Hypotension [Recovered/Resolved]
  - Flank pain [Recovered/Resolved]
